FAERS Safety Report 10736571 (Version 1)
Quarter: 2015Q1

REPORT INFORMATION
  Report Type: Spontaneous
  Country: US (occurrence: None)
  Receive Date: 20150123
  Receipt Date: 20150123
  Transmission Date: 20150721
  Serious: Yes (Hospitalization)
  Sender: FDA-Public Use
  Company Number: None

PATIENT
  Age: 81 Year
  Sex: Male
  Weight: 83.9 kg

DRUGS (6)
  1. QUINAPRIL [Concomitant]
     Active Substance: QUINAPRIL\QUINAPRIL HYDROCHLORIDE
  2. NIFEDIPINE. [Concomitant]
     Active Substance: NIFEDIPINE
  3. METOPROLOL [Concomitant]
     Active Substance: METOPROLOL
  4. LEUPROLIDE ACETATE. [Suspect]
     Active Substance: LEUPROLIDE ACETATE
     Dates: end: 20141126
  5. CASODEX [Suspect]
     Active Substance: BICALUTAMIDE
     Dates: end: 20141203
  6. SIMVASTATIN. [Concomitant]
     Active Substance: SIMVASTATIN

REACTIONS (17)
  - Pulmonary hypertension [None]
  - Oral pain [None]
  - Pain in jaw [None]
  - Cerebral ischaemia [None]
  - Tricuspid valve incompetence [None]
  - Pulmonary embolism [None]
  - Jaw fracture [None]
  - Dilatation ventricular [None]
  - Fall [None]
  - Face injury [None]
  - Lacunar infarction [None]
  - Troponin increased [None]
  - Syncope [None]
  - Systolic dysfunction [None]
  - Laceration [None]
  - Aortic valve sclerosis [None]
  - Mouth injury [None]

NARRATIVE: CASE EVENT DATE: 20141203
